FAERS Safety Report 5340290-4 (Version None)
Quarter: 2007Q2

REPORT INFORMATION
  Report Type: 
  Country: None (occurrence: None)
  Receive Date: 20070531
  Receipt Date: 20070519
  Transmission Date: 20071010
  Serious: Yes (Other)
  Sender: FDA-Public Use
  Company Number: FR-AMGEN-US226837

PATIENT
  Age: 32 Year

DRUGS (1)
  1. ENBREL [Suspect]
     Indication: ANKYLOSING SPONDYLITIS
     Dosage: UNKNOWN (DOSE AND FREQUENCY) WITH SEVERAL WITHDRAWAL ATTEMPTS
     Route: 058
     Dates: start: 20050901, end: 20070401

REACTIONS (4)
  - ANKYLOSING SPONDYLITIS [None]
  - CONDITION AGGRAVATED [None]
  - HYPERMETROPIA [None]
  - VISUAL ACUITY REDUCED [None]
